FAERS Safety Report 10573111 (Version 1)
Quarter: 2014Q4

REPORT INFORMATION
  Report Type: Spontaneous
  Country: US (occurrence: None)
  Receive Date: 20141107
  Receipt Date: 20141107
  Transmission Date: 20150529
  Serious: No
  Sender: FDA-Public Use
  Company Number: None

PATIENT
  Age: 67 Year
  Sex: Female
  Weight: 77.11 kg

DRUGS (1)
  1. AMOXICILLIN 875MG CVS [Suspect]
     Active Substance: AMOXICILLIN
     Indication: SINUSITIS
     Dosage: 20 PILLS
     Route: 048
     Dates: start: 20141031, end: 20141105

REACTIONS (1)
  - Abdominal pain [None]

NARRATIVE: CASE EVENT DATE: 20141105
